FAERS Safety Report 6478128-4 (Version None)
Quarter: 2009Q4

REPORT INFORMATION
  Report Type: 
  Country: None (occurrence: None)
  Receive Date: 20091207
  Receipt Date: 20090217
  Transmission Date: 20100525
  Serious: No
  Sender: FDA-Public Use
  Company Number: US-AMGEN-KDL330411

PATIENT
  Sex: Male
  Weight: 58 kg

DRUGS (4)
  1. ENBREL [Suspect]
     Indication: JUVENILE ARTHRITIS
     Route: 058
     Dates: start: 20080714, end: 20090217
  2. METHOTREXATE [Concomitant]
     Route: 048
     Dates: start: 20080625
  3. FOLIC ACID [Concomitant]
     Dates: start: 20080628
  4. IRON [Concomitant]
     Dates: start: 20081201

REACTIONS (4)
  - CONTUSION [None]
  - DIZZINESS [None]
  - DYSPNOEA [None]
  - INJECTION SITE HAEMATOMA [None]
